FAERS Safety Report 7750402-0 (Version None)
Quarter: 2011Q3

REPORT INFORMATION
  Report Type: 
  Country: None (occurrence: None)
  Receive Date: 20110914
  Receipt Date: 20110907
  Transmission Date: 20111222
  Serious: Yes (Hospitalization)
  Sender: FDA-Public Use
  Company Number: JP-SANOFI-AVENTIS-2011SA045897

PATIENT
  Age: 80 Year
  Sex: Male
  Weight: 42 kg

DRUGS (8)
  1. LANTUS [Suspect]
     Indication: DIABETES MELLITUS
     Route: 058
     Dates: start: 20091107, end: 20110630
  2. JANUVIA [Suspect]
     Route: 048
     Dates: start: 20110702, end: 20110704
  3. ALDACTONE [Concomitant]
     Route: 048
  4. LEVOFLOXACIN [Concomitant]
     Route: 048
     Dates: start: 20110625, end: 20110629
  5. SOLOSTAR [Suspect]
     Indication: DEVICE THERAPY
     Dates: start: 20091104, end: 20110630
  6. FUROSEMIDE [Concomitant]
     Indication: ACUTE PRERENAL FAILURE
     Route: 048
  7. AMARYL [Suspect]
     Indication: DIABETES MELLITUS
     Route: 048
     Dates: start: 20110420, end: 20110630
  8. SPIRONOLACTONE [Concomitant]
     Indication: ACUTE PRERENAL FAILURE

REACTIONS (2)
  - HYPOGLYCAEMIA [None]
  - ACUTE PRERENAL FAILURE [None]
